FAERS Safety Report 4543349-4 (Version None)
Quarter: 2005Q1

REPORT INFORMATION
  Report Type: 
  Country: None (occurrence: None)
  Receive Date: 20050103
  Receipt Date: 20041006
  Transmission Date: 20050727
  Serious: Yes (Other)
  Sender: FDA-Public Use
  Company Number: DE-ROCHE-382541

PATIENT
  Age: 45 Year
  Sex: Male

DRUGS (2)
  1. ROACCUTAN [Suspect]
     Dosage: ISOTRETINOIN WAS TAKEN IN A ^NORMAL DOSAGE^.
     Route: 048
     Dates: start: 20030315, end: 20040315
  2. ROACCUTAN [Suspect]
     Route: 048

REACTIONS (1)
  - EJACULATION DISORDER [None]
